FAERS Safety Report 6374805-4 (Version None)
Quarter: 2009Q3

REPORT INFORMATION
  Report Type: 
  Country: None (occurrence: None)
  Receive Date: 20090917
  Receipt Date: 20090917
  Transmission Date: 20100115
  Serious: Yes (Other)
  Sender: FDA-Public Use
  Company Number: None

PATIENT
  Age: 27 Year
  Sex: Female
  Weight: 53.0709 kg

DRUGS (1)
  1. CHANTIX [Suspect]
     Indication: SMOKING CESSATION THERAPY
     Dosage: .5MG 1/DAY PO
     Route: 048
     Dates: start: 20090913, end: 20090915

REACTIONS (12)
  - ABNORMAL BEHAVIOUR [None]
  - AGGRESSION [None]
  - AGITATION [None]
  - ANGER [None]
  - CONVERSION DISORDER [None]
  - CRYING [None]
  - DELUSION [None]
  - DISTURBANCE IN ATTENTION [None]
  - HOSTILITY [None]
  - HYPERHIDROSIS [None]
  - TREMOR [None]
  - VIOLENCE-RELATED SYMPTOM [None]
